FAERS Safety Report 8512508-8 (Version None)
Quarter: 2012Q3

REPORT INFORMATION
  Report Type: 
  Country: None (occurrence: None)
  Receive Date: 20120716
  Receipt Date: 20120523
  Transmission Date: 20120928
  Serious: Yes (Hospitalization)
  Sender: FDA-Public Use
  Company Number: JP-GLAXOSMITHKLINE-B0804425A

PATIENT
  Sex: Female

DRUGS (3)
  1. LAMICTAL [Suspect]
     Dosage: 475MG PER DAY
     Route: 048
     Dates: start: 20120101
  2. TEGRETOL [Concomitant]
     Indication: EPILEPSY
     Route: 048
     Dates: start: 20110101, end: 20120501
  3. LAMICTAL [Suspect]
     Indication: EPILEPSY
     Dosage: 250MG PER DAY
     Route: 048
     Dates: start: 20120101, end: 20120501

REACTIONS (3)
  - EPILEPSY [None]
  - DRUG LEVEL DECREASED [None]
  - MATERNAL EXPOSURE DURING PREGNANCY [None]
